FAERS Safety Report 4953787-3 (Version None)
Quarter: 2006Q1

REPORT INFORMATION
  Report Type: 
  Country: None (occurrence: None)
  Receive Date: 20060321
  Receipt Date: 20060309
  Transmission Date: 20060701
  Serious: Yes (Other)
  Sender: FDA-Public Use
  Company Number: S06-USA-00516-01

PATIENT
  Age: 45 Year
  Sex: Female

DRUGS (1)
  1. NAMENDA [Suspect]
     Indication: MIGRAINE
     Dates: start: 20051201

REACTIONS (3)
  - HYPOMANIA [None]
  - LEGAL PROBLEM [None]
  - ROAD TRAFFIC ACCIDENT [None]
